FAERS Safety Report 7721472-0 (Version None)
Quarter: 2011Q3

REPORT INFORMATION
  Report Type: 
  Country: None (occurrence: None)
  Receive Date: 20110831
  Receipt Date: 20110824
  Transmission Date: 20111222
  Serious: Yes (Hospitalization)
  Sender: FDA-Public Use
  Company Number: US-JNJFOC-20110611971

PATIENT
  Sex: Male
  Weight: 49.44 kg

DRUGS (5)
  1. REMICADE [Suspect]
     Indication: INFLAMMATORY BOWEL DISEASE
     Route: 042
     Dates: start: 20080122
  2. MESALAMINE [Concomitant]
     Route: 048
  3. REMICADE [Suspect]
     Route: 042
     Dates: start: 20060308
  4. FERROUS SULFATE TAB [Concomitant]
  5. BACTRIM [Concomitant]

REACTIONS (3)
  - PERIRECTAL ABSCESS [None]
  - SMALL INTESTINAL OBSTRUCTION [None]
  - PELVIC ABSCESS [None]
